FAERS Safety Report 9158084 (Version 24)
Quarter: 2016Q1

REPORT INFORMATION
  Report Type: Spontaneous
  Country: US (occurrence: US)
  Receive Date: 20130312
  Receipt Date: 20160310
  Transmission Date: 20160526
  Serious: Yes (Hospitalization, Other)
  Sender: FDA-Public Use
  Company Number: US-GLAXOSMITHKLINE-A1009750A

PATIENT
  Age: 48 Year
  Sex: Female
  Weight: 52 kg

DRUGS (21)
  1. FLOLAN [Suspect]
     Active Substance: EPOPROSTENOL SODIUM
     Dosage: 31.5 NG/KG/MIN, UNK
     Route: 042
  2. FLOLAN [Suspect]
     Active Substance: EPOPROSTENOL SODIUM
     Dosage: UNK
  3. OPSUMIT [Suspect]
     Active Substance: MACITENTAN
     Indication: PRODUCT USED FOR UNKNOWN INDICATION
     Dosage: UNK
  4. FLOLAN [Suspect]
     Active Substance: EPOPROSTENOL SODIUM
     Indication: COR PULMONALE CHRONIC
     Dosage: 31.5 NG/KG/MIN, CO
     Route: 042
     Dates: start: 19990112
  5. FLOLAN [Suspect]
     Active Substance: EPOPROSTENOL SODIUM
     Dosage: UNK
     Dates: start: 19990112
  6. FLOLAN [Suspect]
     Active Substance: EPOPROSTENOL SODIUM
     Dosage: 34.5 NG/KG/MIN
     Route: 042
  7. FLOLAN [Suspect]
     Active Substance: EPOPROSTENOL SODIUM
     Dosage: 37.5 NG/KG/MIN, CONTINUOUSLY
     Dates: start: 19991116
  8. FLOLAN [Suspect]
     Active Substance: EPOPROSTENOL SODIUM
     Dosage: UNK
  9. FLOLAN [Suspect]
     Active Substance: EPOPROSTENOL SODIUM
     Dosage: 22 NG/KG/MIN CONTINUOUS
     Route: 042
  10. FLOLAN [Suspect]
     Active Substance: EPOPROSTENOL SODIUM
     Dosage: UNK, CO
     Dates: start: 19991116
  11. WARFARIN [Concomitant]
     Active Substance: WARFARIN
  12. FLOLAN [Suspect]
     Active Substance: EPOPROSTENOL SODIUM
     Indication: PULMONARY HYPERTENSION
     Dosage: UNK
     Dates: start: 19990112
  13. FLOLAN [Suspect]
     Active Substance: EPOPROSTENOL SODIUM
     Dosage: UNK
     Dates: start: 19990112
  14. FLOLAN [Suspect]
     Active Substance: EPOPROSTENOL SODIUM
     Dosage: 22NG/KG/MIN (CONCENTRATION 45,000 NG/ML, PUMP RATE 61 ML/DAY, 1.5 MG), CO
  15. OPSUMIT [Concomitant]
     Active Substance: MACITENTAN
  16. FLOLAN [Suspect]
     Active Substance: EPOPROSTENOL SODIUM
     Dosage: UNK
     Dates: start: 19990112
  17. FLOLAN [Suspect]
     Active Substance: EPOPROSTENOL SODIUM
     Dosage: UNK
     Dates: start: 19990112
  18. REVATIO [Concomitant]
     Active Substance: SILDENAFIL CITRATE
  19. FLOLAN [Suspect]
     Active Substance: EPOPROSTENOL SODIUM
     Dosage: 31.5 NG/KG/MIN CONTINUOUSLY
     Route: 042
  20. FLOLAN [Suspect]
     Active Substance: EPOPROSTENOL SODIUM
     Dosage: 35.5 NG/KG/MIN, UNK
     Route: 042
  21. FLOLAN [Suspect]
     Active Substance: EPOPROSTENOL SODIUM
     Dosage: 35.5 NG/KG/MIN
     Dates: start: 19991116

REACTIONS (22)
  - Pulmonary arterial hypertension [Not Recovered/Not Resolved]
  - Complication associated with device [Recovered/Resolved]
  - Subdural haemorrhage [Unknown]
  - Nervous system disorder [Unknown]
  - Catheter site infection [Recovered/Resolved]
  - Nosocomial infection [Recovered/Resolved]
  - Fluid retention [Unknown]
  - Internal haemorrhage [Unknown]
  - Pulmonary hypertension [Unknown]
  - Eye pain [Unknown]
  - Cerebral haemorrhage [Unknown]
  - Staphylococcal infection [Recovered/Resolved]
  - Central venous catheterisation [Recovered/Resolved]
  - Dyspnoea [Unknown]
  - Abdominal distension [Unknown]
  - Weight decreased [Unknown]
  - Ocular hyperaemia [Unknown]
  - Device malfunction [Not Recovered/Not Resolved]
  - Cardiac disorder [Not Recovered/Not Resolved]
  - Disorientation [Not Recovered/Not Resolved]
  - Dizziness [Unknown]
  - Asthenia [Unknown]

NARRATIVE: CASE EVENT DATE: 20130118
